FAERS Safety Report 12687750 (Version 4)
Quarter: 2017Q3

REPORT INFORMATION
  Report Type: Report from Study
  Country: US (occurrence: US)
  Receive Date: 20160826
  Receipt Date: 20170712
  Transmission Date: 20171127
  Serious: Yes (Other)
  Sender: FDA-Public Use
  Company Number: US-AEGERION-AEGR001662

PATIENT
  Age: 41 Year
  Sex: Female
  Weight: 150 kg

DRUGS (15)
  1. VITAMIN B12 [Concomitant]
     Active Substance: CYANOCOBALAMIN
     Route: 065
     Dates: start: 20120601
  2. NOVOLOG [Concomitant]
     Active Substance: INSULIN ASPART
     Indication: TYPE 2 DIABETES MELLITUS
     Dosage: 16 IU, TID
     Route: 058
  3. IRON [Concomitant]
     Active Substance: IRON
     Indication: NUTRITIONAL SUPPLEMENTATION
     Route: 048
     Dates: start: 200601
  4. VITAMIN B12 [Concomitant]
     Active Substance: CYANOCOBALAMIN
     Indication: NUTRITIONAL SUPPLEMENTATION
     Route: 048
     Dates: start: 2006
  5. HYDROCHLOROTHIAZIDE. [Concomitant]
     Active Substance: HYDROCHLOROTHIAZIDE
     Indication: HYPERTENSION
     Dosage: 25 MG, QD
     Route: 048
  6. METRELEPTIN [Suspect]
     Active Substance: METRELEPTIN
     Indication: LIPODYSTROPHY ACQUIRED
     Dosage: 2.5 MG, UNK
     Route: 058
     Dates: start: 20080530, end: 20081128
  7. MULTIVITAMINS [Concomitant]
     Active Substance: VITAMINS
     Indication: NUTRITIONAL SUPPLEMENTATION
     Dosage: EVERY DAY
     Route: 048
     Dates: start: 2006
  8. VITAMIN D [Concomitant]
     Active Substance: CHOLECALCIFEROL
     Indication: VITAMIN D DEFICIENCY
     Dosage: 50000 IU, 2 WEEKLY
     Route: 048
     Dates: start: 20121030
  9. METFORMIN [Concomitant]
     Active Substance: METFORMIN HYDROCHLORIDE
     Indication: TYPE 2 DIABETES MELLITUS
     Dosage: 500 MG, BID
     Route: 048
  10. PRAMLINTIDE ACETATE. [Suspect]
     Active Substance: PRAMLINTIDE ACETATE
     Indication: OBESITY
     Route: 058
     Dates: start: 20080530, end: 20081128
  11. PRENATAL VITAMINS [Concomitant]
     Active Substance: VITAMINS
     Indication: NUTRITIONAL SUPPLEMENTATION
     Dosage: EVERY DAY
     Route: 048
     Dates: start: 20081106
  12. CYANOCOBALAMIN. [Concomitant]
     Active Substance: CYANOCOBALAMIN
     Indication: ANAEMIA
     Dosage: 1000 MCG/ML ONCE A MONTH
     Route: 058
     Dates: start: 20141111
  13. BELVIQ XR [Concomitant]
     Active Substance: LORCASERIN HYDROCHLORIDE
     Indication: PRODUCT USED FOR UNKNOWN INDICATION
     Dosage: 20 MG, QAM
     Route: 048
  14. LEVEMIR [Concomitant]
     Active Substance: INSULIN DETEMIR
     Indication: TYPE 2 DIABETES MELLITUS
     Dosage: 50 IU, QHS
     Route: 058
  15. WELCHOL [Concomitant]
     Active Substance: COLESEVELAM HYDROCHLORIDE
     Indication: DYSLIPIDAEMIA
     Route: 048
     Dates: start: 20120703

REACTIONS (26)
  - Insulin resistance [Unknown]
  - Sleep apnoea syndrome [Not Recovered/Not Resolved]
  - Fatigue [Not Recovered/Not Resolved]
  - Back pain [Not Recovered/Not Resolved]
  - Glucose tolerance impaired [Not Recovered/Not Resolved]
  - Chest pain [Unknown]
  - Abdominal pain lower [Unknown]
  - Major depression [Unknown]
  - Weight increased [Not Recovered/Not Resolved]
  - Vaginal infection [Unknown]
  - Weight decreased [Unknown]
  - Diabetic ketoacidosis [Recovering/Resolving]
  - Endocrine disorder [Not Recovered/Not Resolved]
  - Hypertension [Not Recovered/Not Resolved]
  - Oedema peripheral [Not Recovered/Not Resolved]
  - Osteoarthritis [Not Recovered/Not Resolved]
  - Amenorrhoea [Unknown]
  - Neutralising antibodies positive [Not Recovered/Not Resolved]
  - Hypoxia [Unknown]
  - Dyspnoea [Unknown]
  - Respiratory tract infection [Unknown]
  - Type 2 diabetes mellitus [Not Recovered/Not Resolved]
  - Dysuria [Unknown]
  - Gait disturbance [Unknown]
  - Blood glucose increased [Unknown]
  - Diarrhoea [Unknown]

NARRATIVE: CASE EVENT DATE: 2011
